FAERS Safety Report 6651937-4 (Version None)
Quarter: 2010Q1

REPORT INFORMATION
  Report Type: 
  Country: None (occurrence: None)
  Receive Date: 20100325
  Receipt Date: 20100323
  Transmission Date: 20100710
  Serious: Yes (Hospitalization, Other)
  Sender: FDA-Public Use
  Company Number: US-ROXANE LABORATORIES, INC.-2010-RO-00318RO

PATIENT
  Age: 57 Year
  Sex: Female

DRUGS (5)
  1. METHOTREXATE [Suspect]
     Indication: PSORIASIS
  2. LISINOPRIL [Suspect]
     Indication: HYPERTENSION
  3. METOPROLOL [Suspect]
     Indication: HYPERTENSION
  4. OXYGEN [Concomitant]
     Indication: OXYGEN SUPPLEMENTATION
     Route: 055
  5. PREDNISONE TAB [Concomitant]
     Indication: PULMONARY TOXICITY
     Dosage: 60 MG

REACTIONS (4)
  - BRONCHIECTASIS [None]
  - DYSPNOEA [None]
  - LUNG NEOPLASM [None]
  - PULMONARY TOXICITY [None]
